FAERS Safety Report 17360613 (Version 1)
Quarter: 2020Q1

REPORT INFORMATION
  Report Type: Spontaneous
  Country: US (occurrence: US)
  Receive Date: 20200131
  Receipt Date: 20200131
  Transmission Date: 20200409
  Serious: Yes (Disabling)
  Sender: FDA-Public Use
  Company Number: None

PATIENT
  Age: 43 Year
  Sex: Female
  Weight: 99 kg

DRUGS (1)
  1. UBRELVY [Suspect]
     Active Substance: UBROGEPANT
     Indication: MIGRAINE
     Dosage: ?          QUANTITY:1 TABLET(S);?
     Route: 048
     Dates: start: 20200130, end: 20200130

REACTIONS (6)
  - Nasopharyngitis [None]
  - Crying [None]
  - Vomiting [None]
  - Nausea [None]
  - Headache [None]
  - Pain in extremity [None]

NARRATIVE: CASE EVENT DATE: 20200130
